FAERS Safety Report 21747249 (Version 1)
Quarter: 2022Q4

REPORT INFORMATION
  Report Type: Spontaneous
  Country: US (occurrence: None)
  Receive Date: 20221217
  Receipt Date: 20221217
  Transmission Date: 20230112
  Serious: No
  Sender: FDA-Public Use
  Company Number: None

PATIENT
  Age: 58 Year
  Sex: Female
  Weight: 99 kg

DRUGS (10)
  1. PEROXIE CARE TARTAR CONTROL HEALTHY GUMS BAKING SODA AND PEROXIDE [Suspect]
     Active Substance: SODIUM FLUORIDE
     Indication: Tooth deposit
     Dosage: OTHER QUANTITY : .25 TEASPOON(S);?FREQUENCY : TWICE A DAY;?OTHER ROUTE : BRUSH TEETH WITH IT;?
     Route: 050
  2. LOSARTAN [Concomitant]
     Active Substance: LOSARTAN
  3. MELATONIN [Concomitant]
     Active Substance: MELATONIN
  4. VITAMIN B COMPLEX [Concomitant]
     Active Substance: CYANOCOBALAMIN\DEXPANTHENOL\NIACINAMIDE\PYRIDOXINE HYDROCHLORIDE\RIBOFLAVIN 5^-PHOSPHATE SODIUM\THIA
  5. VITAMIN E [Concomitant]
     Active Substance: .ALPHA.-TOCOPHEROL
  6. VITAMIN C [Concomitant]
     Active Substance: ASCORBIC ACID
  7. VITAMIN D3 [Concomitant]
     Active Substance: CHOLECALCIFEROL
  8. CALCIUM\MAGNESIUM [Concomitant]
     Active Substance: CALCIUM\MAGNESIUM
  9. COLLAGEN [Concomitant]
     Active Substance: COLLAGEN
  10. FERROUS SULFATE [Concomitant]
     Active Substance: FERROUS SULFATE

REACTIONS (4)
  - Noninfective gingivitis [None]
  - Chapped lips [None]
  - Burning sensation mucosal [None]
  - Product quality issue [None]

NARRATIVE: CASE EVENT DATE: 20221211
